FAERS Safety Report 4332884-X (Version None)
Quarter: 2004Q1

REPORT INFORMATION
  Report Type: 
  Country: None (occurrence: None)
  Receive Date: 20040330
  Receipt Date: 20040323
  Transmission Date: 20041129
  Serious: Yes (Life-Threatening)
  Sender: FDA-Public Use
  Company Number: BDI-005976

PATIENT
  Age: 58 Year
  Sex: Male

DRUGS (2)
  1. RENOGRAFIN 60% [Suspect]
     Indication: CYSTOGRAM
     Dosage: SY
  2. RENOGRAFIN 60% [Suspect]
     Indication: FISTULA
     Dosage: SY

REACTIONS (7)
  - BLOOD GLUCOSE DECREASED [None]
  - CATHETER RELATED COMPLICATION [None]
  - CONTRAST MEDIA REACTION [None]
  - GRAND MAL CONVULSION [None]
  - INJECTION SITE EXTRAVASATION [None]
  - INJURY [None]
  - PROCEDURAL COMPLICATION [None]
